FAERS Safety Report 25429438 (Version 1)
Quarter: 2025Q2

REPORT INFORMATION
  Report Type: Spontaneous
  Country: US (occurrence: None)
  Receive Date: 20250612
  Receipt Date: 20250612
  Transmission Date: 20250716
  Serious: Yes (Death)
  Sender: FDA-CTU
  Company Number: None

PATIENT
  Age: 70 Year
  Sex: Male

DRUGS (6)
  1. REPATHA [Suspect]
     Active Substance: EVOLOCUMAB
     Indication: Arteriosclerosis
     Dosage: 2  ONCE EVERY2 WEEKS SUBCUTANEOUS?
     Route: 058
     Dates: start: 20240328, end: 20250513
  2. AMLODIPINE [Concomitant]
     Active Substance: AMLODIPINE BESYLATE
  3. EZETIMIBE [Concomitant]
     Active Substance: EZETIMIBE
  4. ESOMEPRAZOLE [Concomitant]
     Active Substance: ESOMEPRAZOLE
  5. LOSARTAN [Concomitant]
     Active Substance: LOSARTAN
  6. ATENOLOL [Concomitant]
     Active Substance: ATENOLOL

REACTIONS (1)
  - Gastric cancer [None]

NARRATIVE: CASE EVENT DATE: 20250609
